FAERS Safety Report 25200310 (Version 2)
Quarter: 2025Q3

REPORT INFORMATION
  Report Type: Spontaneous
  Country: US (occurrence: US)
  Receive Date: 20250415
  Receipt Date: 20250912
  Transmission Date: 20251021
  Serious: No
  Sender: SANOFI AVENTIS
  Company Number: US-SA-2025SA107598

PATIENT
  Age: 53 Year
  Sex: Female
  Weight: 79.55 kg

DRUGS (1)
  1. DUPIXENT [Suspect]
     Active Substance: DUPILUMAB
     Indication: Eosinophilic oesophagitis
     Dosage: 300 MG, QW
     Route: 058

REACTIONS (5)
  - Abdominal pain upper [Unknown]
  - Dyspnoea [Unknown]
  - Swelling [Unknown]
  - Throat tightness [Unknown]
  - Dysphagia [Unknown]
